FAERS Safety Report 4622159-3 (Version None)
Quarter: 2005Q1

REPORT INFORMATION
  Report Type: 
  Country: None (occurrence: None)
  Receive Date: 20050329
  Receipt Date: 20040601
  Transmission Date: 20050727
  Serious: Yes (Other)
  Sender: FDA-Public Use
  Company Number: 2004-00004

PATIENT
  Sex: 0

DRUGS (1)
  1. INTEGRILIN [Suspect]

REACTIONS (1)
  - CARDIAC TAMPONADE [None]
